FAERS Safety Report 14527355 (Version 2)
Quarter: 2018Q1

REPORT INFORMATION
  Report Type: Spontaneous
  Country: FI (occurrence: FI)
  Receive Date: 20180213
  Receipt Date: 20180221
  Transmission Date: 20180509
  Serious: Yes (Hospitalization, Other)
  Sender: FDA-Public Use
  Company Number: FI-TEVA-2018-FI-855367

PATIENT
  Age: 31 Year
  Sex: Female

DRUGS (1)
  1. COPAXONE [Suspect]
     Active Substance: GLATIRAMER ACETATE
     Route: 065
     Dates: start: 201609, end: 201801

REACTIONS (8)
  - Anaphylactic reaction [Unknown]
  - Dyspnoea [Unknown]
  - Mouth swelling [Unknown]
  - Swollen tongue [Unknown]
  - Rash pustular [Unknown]
  - Urticaria [Unknown]
  - Injection site haemorrhage [Unknown]
  - Pruritus [Unknown]

NARRATIVE: CASE EVENT DATE: 201801
